FAERS Safety Report 6430766-0 (Version None)
Quarter: 2009Q4

REPORT INFORMATION
  Report Type: 
  Country: None (occurrence: None)
  Receive Date: 20091106
  Receipt Date: 20091028
  Transmission Date: 20100525
  Serious: Yes (Other)
  Sender: FDA-Public Use
  Company Number: JP-ASTRAZENECA-2009SE19967

PATIENT
  Age: 43 Year
  Sex: Female
  Weight: 48 kg

DRUGS (2)
  1. NOLVADEX [Suspect]
     Indication: BREAST CANCER
     Route: 048
     Dates: start: 20080310, end: 20090903
  2. TOKISHAKUYAKUSAN [Concomitant]
     Indication: MENOPAUSAL SYMPTOMS
     Dosage: TAKING OCCASIONALLY
     Route: 048
     Dates: start: 20080903, end: 20090729

REACTIONS (2)
  - ENDOMETRIAL HYPERTROPHY [None]
  - MENOPAUSAL SYMPTOMS [None]
